FAERS Safety Report 25332487 (Version 1)
Quarter: 2025Q2

REPORT INFORMATION
  Report Type: Spontaneous
  Country: US (occurrence: US)
  Receive Date: 20250519
  Receipt Date: 20250519
  Transmission Date: 20250716
  Serious: Yes (Other)
  Sender: NOVARTIS
  Company Number: US-002147023-NVSC2025US080256

PATIENT
  Age: 12 Year
  Sex: Male

DRUGS (2)
  1. TRAMETINIB [Suspect]
     Active Substance: TRAMETINIB
     Indication: Lymphangioma
     Route: 065
  2. VINCRISTINE [Concomitant]
     Active Substance: VINCRISTINE
     Indication: Lymphangioma
     Route: 065

REACTIONS (5)
  - Rhabdomyolysis [Unknown]
  - Acute kidney injury [Unknown]
  - Respiratory failure [Unknown]
  - Muscular weakness [Unknown]
  - Off label use [Unknown]
